FAERS Safety Report 16029655 (Version 1)
Quarter: 2019Q2

REPORT INFORMATION
  Report Type: Spontaneous
  Country: US (occurrence: US)
  Receive Date: 20190303
  Receipt Date: 20190303
  Transmission Date: 20190711
  Serious: Yes (Other)
  Sender: FDA-Public Use
  Company Number: None

PATIENT
  Age: 53 Year
  Sex: Female
  Weight: 74.25 kg

DRUGS (3)
  1. VALTREX [Concomitant]
     Active Substance: VALACYCLOVIR HYDROCHLORIDE
  2. PANTOPRAZOLE: PROTONIX [Suspect]
     Active Substance: PANTOPRAZOLE
     Indication: GASTROOESOPHAGEAL REFLUX DISEASE
     Dosage: ?          OTHER STRENGTH:1;?
     Route: 048
     Dates: start: 20180501, end: 20190223
  3. CENTRUM WOMEN 50+ [Concomitant]
     Active Substance: VITAMINS

REACTIONS (3)
  - Natural killer T cell count increased [None]
  - Muscle spasms [None]
  - Red blood cell count increased [None]

NARRATIVE: CASE EVENT DATE: 20181201
